APPROVED DRUG PRODUCT: HYDROCODONE BITARTRATE AND CHLORPHENIRAMINE MALEATE
Active Ingredient: CHLORPHENIRAMINE MALEATE; HYDROCODONE BITARTRATE
Strength: 4MG/5ML;5MG/5ML
Dosage Form/Route: SOLUTION;ORAL
Application: A206891 | Product #001
Applicant: ACELLA PHARMACEUTICALS LLC
Approved: Jun 9, 2017 | RLD: No | RS: No | Type: DISCN